FAERS Safety Report 9310617 (Version 2)
Quarter: 2013Q4

REPORT INFORMATION
  Report Type: Spontaneous
  Country: PT (occurrence: PT)
  Receive Date: 20130527
  Receipt Date: 20131231
  Transmission Date: 20140711
  Serious: Yes (Hospitalization, Other)
  Sender: FDA-Public Use
  Company Number: PT-BRISTOL-MYERS SQUIBB COMPANY-18910612

PATIENT
  Age: 76 Year
  Sex: Male

DRUGS (7)
  1. SPRYCEL (CML) TABS 100 MG [Suspect]
     Indication: CHRONIC MYELOID LEUKAEMIA
     Dosage: 2007-DASATINIB 70MG 2ID,100MG:08,80MG:2012
     Dates: start: 200707
  2. HYDROXYUREA [Suspect]
     Indication: CHRONIC MYELOID LEUKAEMIA
     Dosage: 2006
     Dates: start: 2002
  3. DIAMICRON [Concomitant]
  4. PANTOPRAZOLE [Concomitant]
  5. TAMSULOSIN [Concomitant]
  6. FOLIC ACID [Concomitant]
  7. DUTASTERIDE [Concomitant]

REACTIONS (2)
  - Colon neoplasm [Unknown]
  - Pleural effusion [Recovered/Resolved]
